FAERS Safety Report 4727382-5 (Version None)
Quarter: 2005Q3

REPORT INFORMATION
  Report Type: 
  Country: None (occurrence: None)
  Receive Date: 20050727
  Receipt Date: 20050727
  Transmission Date: 20060218
  Serious: Yes (Other)
  Sender: FDA-Public Use
  Company Number: None

PATIENT
  Age: 59 Year
  Sex: Male
  Weight: 62.4 kg

DRUGS (11)
  1. LISINOPRIL [Suspect]
     Indication: HYPERTENSION
     Dosage: 10 MG, 10 MG QD, ORAL
     Route: 048
  2. CLONAZEPAM [Concomitant]
  3. SERTRALINE HCL [Concomitant]
  4. RISPERIDONE [Concomitant]
  5. LABETALOL HCL [Concomitant]
  6. COLCHICINE [Concomitant]
  7. INDOMETHACIN [Concomitant]
  8. OMEPRAZOLE [Concomitant]
  9. ACETAMINOPHEN [Concomitant]
  10. GABAPENTIN [Concomitant]
  11. HYDROCHLOROTHIAZIDE [Concomitant]

REACTIONS (1)
  - OEDEMA [None]
